FAERS Safety Report 19430268 (Version 1)
Quarter: 2021Q2

REPORT INFORMATION
  Report Type: Report from Study
  Country: US (occurrence: US)
  Receive Date: 20210617
  Receipt Date: 20210617
  Transmission Date: 20210717
  Serious: Yes (Hospitalization)
  Sender: FDA-Public Use
  Company Number: US-JNJFOC-20210629834

PATIENT
  Age: 38 Year
  Sex: Female

DRUGS (4)
  1. SPRAVATO [Suspect]
     Active Substance: ESKETAMINE
     Dosage: 1 TOTAL DOSE
     Dates: start: 20210603, end: 20210603
  2. SPRAVATO [Suspect]
     Active Substance: ESKETAMINE
     Dosage: 1 TOTAL DOSE
     Dates: start: 20210608, end: 20210608
  3. SPRAVATO [Suspect]
     Active Substance: ESKETAMINE
     Dosage: 1 TOTAL DOSE
     Dates: start: 20210607, end: 20210607
  4. SPRAVATO [Suspect]
     Active Substance: ESKETAMINE
     Indication: DEPRESSION
     Dosage: 1 TOTAL DOSE
     Dates: start: 20210601, end: 20210601

REACTIONS (1)
  - Eating disorder [Unknown]
